FAERS Safety Report 4713623-7 (Version None)
Quarter: 2005Q3

REPORT INFORMATION
  Report Type: 
  Country: None (occurrence: None)
  Receive Date: 20050712
  Receipt Date: 20050628
  Transmission Date: 20060218
  Serious: Yes (Other)
  Sender: FDA-Public Use
  Company Number: DE_050616304

PATIENT
  Age: 60 Year
  Sex: Female

DRUGS (3)
  1. YENTREVE (DULOXETINE HYDROCHLORIDE) [Suspect]
     Indication: URINARY INCONTINENCE
     Dosage: 40 MG/1 D
     Dates: start: 20050602, end: 20050602
  2. EFEROX (LEVOTHYROXINE SODUM) [Concomitant]
  3. ENALAPRIL [Concomitant]

REACTIONS (8)
  - CARDIOVASCULAR DISORDER [None]
  - DIARRHOEA [None]
  - DIZZINESS [None]
  - DYSPEPSIA [None]
  - FATIGUE [None]
  - NAUSEA [None]
  - SYNCOPE [None]
  - VOMITING [None]
